FAERS Safety Report 24017952 (Version 2)
Quarter: 2024Q3

REPORT INFORMATION
  Report Type: Spontaneous
  Country: JP (occurrence: JP)
  Receive Date: 20240627
  Receipt Date: 20240729
  Transmission Date: 20241016
  Serious: Yes (Death, Hospitalization, Other)
  Sender: MERCK
  Company Number: JP-MSD-2406JPN003152J

PATIENT
  Age: 8 Decade
  Sex: Female

DRUGS (3)
  1. KEYTRUDA [Suspect]
     Active Substance: PEMBROLIZUMAB
     Indication: Uterine cancer
     Dosage: 200 MILLIGRAM, Q3W
     Route: 041
     Dates: start: 20240318, end: 20240617
  2. LENVATINIB MESYLATE [Suspect]
     Active Substance: LENVATINIB MESYLATE
     Indication: Uterine cancer
     Dosage: 8 MILLIGRAM, QD
     Route: 048
     Dates: start: 20240318, end: 20240519
  3. LENVATINIB MESYLATE [Suspect]
     Active Substance: LENVATINIB MESYLATE
     Dosage: 4 MILLIGRAM, QD
     Route: 048
     Dates: start: 20240520, end: 20240617

REACTIONS (7)
  - Malignant neoplasm progression [Fatal]
  - Obstructive pancreatitis [Fatal]
  - Hypoglycaemia [Recovered/Resolved]
  - Decreased appetite [Recovered/Resolved]
  - Decreased appetite [Unknown]
  - Stomatitis [Unknown]
  - Cough [Unknown]

NARRATIVE: CASE EVENT DATE: 20240501
